FAERS Safety Report 9275685 (Version 1)
Quarter: 2013Q2

REPORT INFORMATION
  Report Type: Spontaneous
  Country: GB (occurrence: None)
  Receive Date: 20130430
  Receipt Date: 20130430
  Transmission Date: 20140414
  Serious: Yes (Other)
  Sender: FDA-Public Use
  Company Number: GER/UKI/13/0029274

PATIENT
  Age: 32 Year
  Sex: Female
  Weight: 70 kg

DRUGS (3)
  1. CIPROFLOXACIN (CIPROFLOXACIN) [Suspect]
     Indication: URINARY TRACT INFECTION
     Route: 048
     Dates: start: 20130403, end: 20130412
  2. NITROFURANTOIN [Suspect]
     Indication: PRODUCT USED FOR UNKNOWN INDICATION
  3. AMOXICILLIN (AMOXICILLIN) [Concomitant]

REACTIONS (6)
  - Drug hypersensitivity [None]
  - Pain in extremity [None]
  - Pain in extremity [None]
  - Weight bearing difficulty [None]
  - Arthralgia [None]
  - Tendonitis [None]
